FAERS Safety Report 10073462 (Version 1)
Quarter: 2014Q2

REPORT INFORMATION
  Report Type: Spontaneous
  Country: IT (occurrence: IT)
  Receive Date: 20140411
  Receipt Date: 20140411
  Transmission Date: 20141212
  Serious: Yes (Hospitalization, Other)
  Sender: FDA-Public Use
  Company Number: IT-ACTAVIS-2014-06838

PATIENT
  Age: 64 Year
  Sex: Female

DRUGS (2)
  1. HYDROCORTISONE (UNKNOWN) [Suspect]
     Indication: PREMATURE MENOPAUSE
     Dosage: UNKNOWN
     Route: 030
     Dates: start: 1997
  2. HYDROCORTISONE (UNKNOWN) [Suspect]
     Indication: HYPOTENSION

REACTIONS (2)
  - Anaphylactic reaction [Recovered/Resolved]
  - Blood immunoglobulin E increased [Not Recovered/Not Resolved]
